FAERS Safety Report 7598340-0 (Version None)
Quarter: 2011Q3

REPORT INFORMATION
  Report Type: 
  Country: None (occurrence: None)
  Receive Date: 20110708
  Receipt Date: 20110627
  Transmission Date: 20111222
  Serious: Yes (Other)
  Sender: FDA-Public Use
  Company Number: PHHY2011US57039

PATIENT
  Sex: Female

DRUGS (2)
  1. ESTRADERM [Suspect]
     Dosage: 0.5 MG, QW2
  2. ESTRADERM [Suspect]
     Dosage: 0.75 MG, QW2
     Route: 062

REACTIONS (2)
  - UTERINE LEIOMYOMA [None]
  - UTERINE DISORDER [None]
